FAERS Safety Report 21744013 (Version 3)
Quarter: 2023Q2

REPORT INFORMATION
  Report Type: Spontaneous
  Country: JP (occurrence: JP)
  Receive Date: 20221217
  Receipt Date: 20230404
  Transmission Date: 20230722
  Serious: Yes (Death, Hospitalization, Other)
  Sender: FDA-Public Use
  Company Number: JP-ASTELLAS-2022JP015972

PATIENT
  Age: 67 Year
  Sex: Male

DRUGS (4)
  1. PADCEV [Suspect]
     Active Substance: ENFORTUMAB VEDOTIN-EJFV
     Indication: Transitional cell carcinoma
     Dosage: UNK UNK, ONCE WEEKLY X 3 TIMES, WEEK 4 WITHDRAWAL
     Route: 041
     Dates: start: 20220817, end: 20220831
  2. PADCEV [Suspect]
     Active Substance: ENFORTUMAB VEDOTIN-EJFV
     Dosage: 1 MG/KG, ONCE WEEKLY X 3 TIMES, WEEK 4 WITHDRAWAL
     Route: 041
     Dates: start: 20220921
  3. PADCEV [Suspect]
     Active Substance: ENFORTUMAB VEDOTIN-EJFV
     Dosage: UNK UNK, UNKNOWN FREQ.
     Route: 041
     Dates: start: 20221019, end: 20221116
  4. PADCEV [Suspect]
     Active Substance: ENFORTUMAB VEDOTIN-EJFV
     Dosage: 1 MG/KG, ONCE WEEKLY X 3 TIMES, WEEK 4 WITHDRAWAL
     Route: 041
     Dates: start: 20221221, end: 20230215

REACTIONS (5)
  - Lung disorder [Recovered/Resolved]
  - Anaemia [Recovered/Resolved]
  - Metastases to lymph nodes [Not Recovered/Not Resolved]
  - COVID-19 [Recovered/Resolved]
  - Malignant neoplasm progression [Fatal]

NARRATIVE: CASE EVENT DATE: 20221026
